FAERS Safety Report 5307766-7 (Version None)
Quarter: 2007Q2

REPORT INFORMATION
  Report Type: 
  Country: None (occurrence: None)
  Receive Date: 20070418
  Receipt Date: 20070409
  Transmission Date: 20071010
  Serious: Yes (Death)
  Sender: FDA-Public Use
  Company Number: C-07-0011

PATIENT
  Age: 7 Month
  Sex: Male
  Weight: 9.7 kg

DRUGS (2)
  1. CARBAXEFED DM RF ORAL DROPS (PRODUCT CODE 8237) [Suspect]
     Indication: UPPER RESPIRATORY TRACT INFECTION
     Dosage: 1 DROPPERFUL/8 HOURS AS NEEDED
     Dates: start: 20070122, end: 20070128
  2. AMOXICILLIN [Concomitant]

REACTIONS (2)
  - OVERDOSE [None]
  - RESPIRATORY ARREST [None]
